FAERS Safety Report 7701599-X (Version None)
Quarter: 2011Q3

REPORT INFORMATION
  Report Type: 
  Country: None (occurrence: None)
  Receive Date: 20110817
  Receipt Date: 20110809
  Transmission Date: 20111222
  Serious: Yes (Hospitalization)
  Sender: FDA-Public Use
  Company Number: GB-ACCORD-009504

PATIENT
  Age: 57 Year
  Sex: Male

DRUGS (12)
  1. ACETAMINOPHEN [Concomitant]
  2. ISOSORBIDE MONONITRATE [Concomitant]
  3. RAMIPRIL [Concomitant]
  4. SIMVASTATIN [Suspect]
     Indication: HYPERCHOLESTEROLAEMIA
     Dosage: 40.00-MG-1.00 TIMES PER-1.0DAYS / ORAL
     Route: 048
     Dates: start: 20060724, end: 20110522
  5. AMLODIPINE [Concomitant]
  6. TRIMETHOPRIM [Suspect]
     Indication: URINARY TRACT INFECTION
     Dosage: 200.00-MG-1.00 TIMES PER-1.0DAYS / ORAL
     Route: 048
     Dates: start: 20110520, end: 20110522
  7. NITROGLYCERIN [Concomitant]
  8. NICORDANDIL(NICORDANDIL) [Concomitant]
  9. CARVEDILOL [Concomitant]
  10. NAFTIDROFURYL(NAFTIDROFURYL) [Concomitant]
  11. ENOXAPARIN SODIUM [Concomitant]
  12. ASPIRIN [Concomitant]

REACTIONS (4)
  - MUSCULOSKELETAL PAIN [None]
  - DRUG INTERACTION [None]
  - ARTHRALGIA [None]
  - RHABDOMYOLYSIS [None]
